FAERS Safety Report 6340618-2 (Version None)
Quarter: 2009Q3

REPORT INFORMATION
  Report Type: 
  Country: None (occurrence: None)
  Receive Date: 20090904
  Receipt Date: 20090824
  Transmission Date: 20100115
  Serious: Yes (Hospitalization)
  Sender: FDA-Public Use
  Company Number: JP-AMGEN-US359185

PATIENT
  Sex: Female

DRUGS (11)
  1. ENBREL [Suspect]
     Indication: RHEUMATOID ARTHRITIS
     Route: 058
     Dates: start: 20090318, end: 20090711
  2. PREDNISOLONE [Concomitant]
     Route: 048
     Dates: start: 20090318, end: 20090522
  3. PREDNISOLONE [Concomitant]
     Route: 048
     Dates: start: 20090523, end: 20090605
  4. PREDNISOLONE [Concomitant]
     Route: 048
     Dates: start: 20090606, end: 20090703
  5. PREDNISOLONE [Concomitant]
     Route: 048
     Dates: start: 20090704, end: 20090720
  6. MUCOSTA [Concomitant]
     Route: 048
     Dates: start: 20090318
  7. BONALON [Concomitant]
     Route: 048
     Dates: start: 20090328
  8. OMEPRAL [Concomitant]
     Route: 048
     Dates: start: 20090318
  9. CELECOXIB [Concomitant]
     Route: 048
     Dates: start: 20090318
  10. METHOTREXATE [Concomitant]
     Indication: RHEUMATOID ARTHRITIS
     Route: 048
     Dates: start: 20090318, end: 20090720
  11. FOLIAMIN [Concomitant]
     Route: 048

REACTIONS (2)
  - LUNG INFECTION PSEUDOMONAL [None]
  - PNEUMOCYSTIS JIROVECI PNEUMONIA [None]
